FAERS Safety Report 9072266 (Version 1)
Quarter: 2013Q1

REPORT INFORMATION
  Report Type: Spontaneous
  Country: US (occurrence: US)
  Receive Date: 20130206
  Receipt Date: 20130206
  Transmission Date: 20140127
  Serious: No
  Sender: FDA-Public Use
  Company Number: US-ALLERGAN-1216999US

PATIENT
  Age: 60 Year
  Sex: Female

DRUGS (2)
  1. RESTASIS? [Suspect]
     Indication: DRY EYE
     Dosage: 2 GTT, BID
     Route: 047
     Dates: start: 2010
  2. AZELASTINE [Concomitant]
     Indication: EYE ALLERGY
     Dosage: 2 GTT, BID
     Route: 047

REACTIONS (2)
  - Corneal abrasion [Recovered/Resolved]
  - Superficial injury of eye [Recovered/Resolved]
